FAERS Safety Report 9555505 (Version 1)
Quarter: 2013Q3

REPORT INFORMATION
  Report Type: Spontaneous
  Country: US (occurrence: None)
  Receive Date: 20130724
  Receipt Date: 20130724
  Transmission Date: 20140515
  Serious: Yes (Hospitalization)
  Sender: FDA-Public Use
  Company Number: PHEH2013US008680

PATIENT
  Age: 44 Year
  Sex: Female
  Weight: 53.5 kg

DRUGS (4)
  1. GILENYA (FINGOLIMOD) CAPSULE [Suspect]
     Indication: MULTIPLE SCLEROSIS
     Route: 048
     Dates: start: 201206, end: 20130217
  2. AMPYRA (DALFAMPRIDINE) TABLET 10MG [Suspect]
     Indication: GAIT DISTURBANCE
     Route: 048
     Dates: start: 201206
  3. VITAMIN C [Concomitant]
  4. VIT D (ERGOCALCIFEROL) [Concomitant]

REACTIONS (4)
  - Kidney infection [None]
  - Movement disorder [None]
  - Pollakiuria [None]
  - Pyrexia [None]
